FAERS Safety Report 10464312 (Version 2)
Quarter: 2014Q4

REPORT INFORMATION
  Report Type: Other
  Country: US (occurrence: US)
  Receive Date: 20140919
  Receipt Date: 20141007
  Transmission Date: 20150528
  Serious: Yes (Death, Hospitalization, Other)
  Sender: FDA-Public Use
  Company Number: US-SHIRE-US201406066

PATIENT
  Sex: Male

DRUGS (1)
  1. FOSRENOL [Suspect]
     Active Substance: LANTHANUM CARBONATE
     Indication: HYPERPHOSPHATAEMIA
     Dosage: 1000 MG, 3X/DAY:TID
     Route: 048
     Dates: end: 20140823

REACTIONS (8)
  - Chronic obstructive pulmonary disease [Unknown]
  - Status epilepticus [Unknown]
  - Pneumonia aspiration [Unknown]
  - Gastrooesophageal reflux disease [Unknown]
  - Cerebral infarction [Fatal]
  - Acute respiratory failure [Unknown]
  - Seizure [Unknown]
  - Hypertension [Unknown]

NARRATIVE: CASE EVENT DATE: 20140823
